FAERS Safety Report 4852834-7 (Version None)
Quarter: 2005Q4

REPORT INFORMATION
  Report Type: 
  Country: None (occurrence: None)
  Receive Date: 20051125
  Receipt Date: 20050822
  Transmission Date: 20060501
  Serious: Yes (Other)
  Sender: FDA-Public Use
  Company Number: US-JNJFOC-20050805462

PATIENT
  Sex: Male

DRUGS (8)
  1. LEVAQUIN [Suspect]
     Indication: PROSTATITIS
     Dosage: 500 MG, 1 IN 1 DAY, ORAL
     Route: 048
     Dates: start: 20040101, end: 20040101
  2. PREDNISONE 50MG TAB [Concomitant]
  3. CYCLOSPORINE [Concomitant]
  4. LEXAPRO [Concomitant]
  5. ATENELOL (ATENOLOL) [Concomitant]
  6. PROCARDIA XL [Concomitant]
  7. MICROFENOLATE (ALL OTHER THERAPEUTIC PRODUCTS) [Concomitant]
  8. QUINATE (QUININE SULFATE) [Concomitant]

REACTIONS (2)
  - TENDON RUPTURE [None]
  - TENDONITIS [None]
